FAERS Safety Report 25235656 (Version 1)
Quarter: 2025Q2

REPORT INFORMATION
  Report Type: Spontaneous
  Country: HR (occurrence: HR)
  Receive Date: 20250424
  Receipt Date: 20250424
  Transmission Date: 20250717
  Serious: Yes (Hospitalization, Other)
  Sender: ORGANON
  Company Number: None

PATIENT
  Age: 13 Year
  Sex: Female

DRUGS (7)
  1. MONTELUKAST SODIUM [Suspect]
     Active Substance: MONTELUKAST SODIUM
     Dosage: 35 MILLIGRAM, QD
     Route: 048
     Dates: start: 20250304, end: 20250304
  2. BILASTINE [Suspect]
     Active Substance: BILASTINE
     Dosage: 40 MILLIGRAM, QD
     Route: 048
     Dates: start: 20250304, end: 20250304
  3. LORATADINE [Suspect]
     Active Substance: LORATADINE
     Dosage: 180 MILLIGRAM, QD
     Route: 048
     Dates: start: 20250304, end: 20250304
  4. DEXKETOPROFEN [Suspect]
     Active Substance: DEXKETOPROFEN
     Dosage: 450 MILLIGRAM, QD
     Route: 048
     Dates: start: 20250304, end: 20250304
  5. ACETAMINOPHEN [Suspect]
     Active Substance: ACETAMINOPHEN
     Dosage: 2 GRAM, QD
     Route: 048
     Dates: start: 20250304, end: 20250304
  6. IBUPROFEN [Suspect]
     Active Substance: IBUPROFEN
     Dosage: 800 MILLIGRAM, QD
     Route: 048
     Dates: start: 20250304, end: 20250304
  7. ZALDIAR [Suspect]
     Active Substance: ACETAMINOPHEN\TRAMADOL HYDROCHLORIDE
     Dosage: 4 DOSAGE FORM, QD (1 {DF} (DOSAGE FORM)= 37.5 MG TRAMADOL CHLORIDE + 325  )
     Route: 048
     Dates: start: 20250304, end: 20250304

REACTIONS (4)
  - Suicide attempt [Unknown]
  - Gait disturbance [Unknown]
  - Somnolence [Unknown]
  - Intentional overdose [Unknown]

NARRATIVE: CASE EVENT DATE: 20250304
